FAERS Safety Report 6473753-9 (Version None)
Quarter: 2009Q4

REPORT INFORMATION
  Report Type: 
  Country: None (occurrence: None)
  Receive Date: 20091204
  Receipt Date: 20091125
  Transmission Date: 20100525
  Serious: Yes (Hospitalization)
  Sender: FDA-Public Use
  Company Number: BE-PFIZER INC-2009304128

PATIENT
  Age: 46 Year
  Sex: Female

DRUGS (2)
  1. EXEMESTANE [Suspect]
     Indication: BREAST CANCER
     Dosage: 25 MG, 1X/DAY
     Route: 048
     Dates: start: 20061004
  2. TRIPTORELIN [Suspect]
     Indication: BREAST CANCER
     Route: 030
     Dates: start: 20060822

REACTIONS (1)
  - BIPOLAR DISORDER [None]
